FAERS Safety Report 7153534-3 (Version None)
Quarter: 2010Q4

REPORT INFORMATION
  Report Type: 
  Country: None (occurrence: None)
  Receive Date: 20101213
  Receipt Date: 20101201
  Transmission Date: 20110411
  Serious: Yes (Death)
  Sender: FDA-Public Use
  Company Number: GXKR2010CH13537

PATIENT
  Age: 83 Year
  Sex: Female

DRUGS (8)
  1. RIFAMPICIN [Suspect]
     Indication: DISSEMINATED TUBERCULOSIS
     Dosage: 450 MG/DAY
     Route: 049
     Dates: start: 20100806, end: 20100817
  2. ISONIAZID [Interacting]
     Indication: DISSEMINATED TUBERCULOSIS
     Dosage: 300 MG/DAY
     Route: 048
     Dates: start: 20100806, end: 20100817
  3. ISONIAZID [Interacting]
     Dosage: 300 MG/DAY (INJECTABLE FORM)
     Dates: start: 20100907, end: 20100910
  4. MYAMBUTOL [Concomitant]
     Dosage: 800 MG, QD
     Route: 048
     Dates: start: 20100806, end: 20100817
  5. LOPRESSOR [Concomitant]
     Dosage: 25 MG, QID
     Route: 048
  6. NOVORAPID [Concomitant]
     Dosage: 12 IU, QD
     Route: 058
  7. SINTROM [Concomitant]
     Dosage: 1 ML, QD
     Route: 048
  8. DIGOXIN [Concomitant]
     Dosage: 0.125 MG, Q12H
     Route: 048

REACTIONS (3)
  - ALANINE AMINOTRANSFERASE INCREASED [None]
  - DRUG INTERACTION [None]
  - HEPATOCELLULAR INJURY [None]
